FAERS Safety Report 22291949 (Version 1)
Quarter: 2023Q2

REPORT INFORMATION
  Report Type: Spontaneous
  Country: US (occurrence: None)
  Receive Date: 20230508
  Receipt Date: 20230508
  Transmission Date: 20230722
  Serious: No
  Sender: FDA-Public Use
  Company Number: 2023A101794

PATIENT
  Sex: Female

DRUGS (1)
  1. BRILINTA [Suspect]
     Active Substance: TICAGRELOR
     Dosage: DOSE UNKNOWN
     Route: 048
     Dates: start: 20230413

REACTIONS (4)
  - Platelet count abnormal [Unknown]
  - Blood pressure increased [Unknown]
  - Frustration tolerance decreased [Unknown]
  - Product use issue [Unknown]
